FAERS Safety Report 14874958 (Version 3)
Quarter: 2018Q3

REPORT INFORMATION
  Report Type: Report from Study
  Country: US (occurrence: US)
  Receive Date: 20180510
  Receipt Date: 20180914
  Transmission Date: 20181010
  Serious: No
  Sender: FDA-Public Use
  Company Number: PHEH2018US018056

PATIENT
  Sex: Female
  Weight: 89.8 kg

DRUGS (2)
  1. GILENYA [Suspect]
     Active Substance: FINGOLIMOD HYDROCHLORIDE
     Dosage: 0.5 MG, QD
     Route: 048
  2. GILENYA [Suspect]
     Active Substance: FINGOLIMOD HYDROCHLORIDE
     Indication: PRODUCT USED FOR UNKNOWN INDICATION
     Dosage: UNK
     Route: 065

REACTIONS (12)
  - Anal incontinence [Unknown]
  - Fatigue [Unknown]
  - Inappropriate schedule of drug administration [Unknown]
  - Memory impairment [Unknown]
  - Back pain [Unknown]
  - Sensory disturbance [Unknown]
  - Headache [Unknown]
  - Pharyngeal oedema [Unknown]
  - Dizziness [Unknown]
  - Peripheral swelling [Unknown]
  - Cystitis [Unknown]
  - Abdominal pain [Unknown]
